FAERS Safety Report 25901339 (Version 1)
Quarter: 2025Q4

REPORT INFORMATION
  Report Type: Spontaneous
  Country: US (occurrence: US)
  Receive Date: 20251009
  Receipt Date: 20251009
  Transmission Date: 20260117
  Serious: Yes (Life-Threatening, Other)
  Sender: PFIZER
  Company Number: US-PFIZER INC-PV202500116500

PATIENT

DRUGS (1)
  1. TRANEXAMIC ACID [Suspect]
     Active Substance: TRANEXAMIC ACID
     Dosage: 300 MG (AT THE LEVEL OF THE 4-5TH LUMBAR VERTEBRA)
     Route: 037

REACTIONS (4)
  - Incorrect route of product administration [Recovered/Resolved]
  - Status epilepticus [Recovered/Resolved]
  - Radiculopathy [Unknown]
  - Muscle spasms [Unknown]
